FAERS Safety Report 11414428 (Version 1)
Quarter: 2015Q3

REPORT INFORMATION
  Report Type: Spontaneous
  Country: None (occurrence: US)
  Receive Date: 20150824
  Receipt Date: 20150824
  Transmission Date: 20151125
  Serious: No
  Sender: FDA-Public Use
  Company Number: US-PERNIX THERAPEUTICS-2015PT000094

PATIENT

DRUGS (4)
  1. TENUATE [Concomitant]
     Active Substance: DIETHYLPROPION HYDROCHLORIDE
     Indication: WEIGHT DECREASED
     Dosage: 75 MG, DAILY
     Route: 048
     Dates: start: 201408
  2. OXYCONTIN [Concomitant]
     Active Substance: OXYCODONE HYDROCHLORIDE
     Dosage: 30 MG, UNK
  3. ZOHYDRO [Suspect]
     Active Substance: HYDROCODONE BITARTRATE
     Indication: PAIN
     Dosage: 40 MG, TWICE DAILY
     Route: 048
     Dates: start: 201408
  4. XANAX [Concomitant]
     Active Substance: ALPRAZOLAM
     Dosage: 0.5 MG, UNK

REACTIONS (2)
  - Fluid retention [None]
  - Oedema peripheral [Not Recovered/Not Resolved]

NARRATIVE: CASE EVENT DATE: 201408
